FAERS Safety Report 20042389 (Version 1)
Quarter: 2021Q4

REPORT INFORMATION
  Report Type: Spontaneous
  Country: US (occurrence: US)
  Receive Date: 20211108
  Receipt Date: 20211108
  Transmission Date: 20220303
  Serious: No
  Sender: FDA-Public Use
  Company Number: US-SA-SAC20211102001212

PATIENT
  Age: 11 Year
  Sex: Male

DRUGS (1)
  1. DUPIXENT [Suspect]
     Active Substance: DUPILUMAB
     Indication: Eczema
     Dosage: 200 MG,QOW
     Route: 058
     Dates: start: 202106

REACTIONS (3)
  - Eczema [Unknown]
  - Product dose omission issue [Unknown]
  - Device use issue [Unknown]

NARRATIVE: CASE EVENT DATE: 20210601
